FAERS Safety Report 25807390 (Version 1)
Quarter: 2025Q3

REPORT INFORMATION
  Report Type: Report from Study
  Country: CN (occurrence: CN)
  Receive Date: 20250916
  Receipt Date: 20250916
  Transmission Date: 20251021
  Serious: Yes (Other)
  Sender: ROCHE
  Company Number: CN-ROCHE-1991742

PATIENT
  Age: 68 Year
  Sex: Female
  Weight: 65 kg

DRUGS (1)
  1. AVASTIN [Suspect]
     Active Substance: BEVACIZUMAB
     Indication: Non-small cell lung cancer
     Route: 042
     Dates: start: 20170320

REACTIONS (8)
  - Pyrexia [Unknown]
  - Nasopharyngitis [Recovered/Resolved]
  - Hypertension [Unknown]
  - Protein urine present [Unknown]
  - Carcinoembryonic antigen increased [Unknown]
  - Pulmonary mass [Not Recovered/Not Resolved]
  - Metastasis [Not Recovered/Not Resolved]
  - Pleural effusion [Not Recovered/Not Resolved]

NARRATIVE: CASE EVENT DATE: 20230129
